FAERS Safety Report 18732777 (Version 2)
Quarter: 2021Q3

REPORT INFORMATION
  Report Type: Spontaneous
  Country: JP (occurrence: JP)
  Receive Date: 20210113
  Receipt Date: 20210709
  Transmission Date: 20211014
  Serious: No
  Sender: FDA-Public Use
  Company Number: JP-MTPC-MTPC2020-0074489

PATIENT
  Age: 76 Year
  Sex: Male

DRUGS (22)
  1. TRAZENTA [Concomitant]
     Active Substance: LINAGLIPTIN
     Indication: DIABETES MELLITUS
  2. CLOPIDOGREL [Concomitant]
     Active Substance: CLOPIDOGREL BISULFATE
     Indication: IGA NEPHROPATHY
     Dosage: 75 MILLIGRAM, QD
     Route: 048
  3. ROSUVASTATIN. [Concomitant]
     Active Substance: ROSUVASTATIN
     Indication: IGA NEPHROPATHY
     Dosage: 2.5 MILLIGRAM, QD
     Route: 048
  4. PREDNISOLONE. [Concomitant]
     Active Substance: PREDNISOLONE
     Indication: IGA NEPHROPATHY
     Dosage: 1.5 MILLIGRAM, QD
     Route: 048
  5. FEBURIC [Concomitant]
     Active Substance: FEBUXOSTAT
     Indication: DIABETES MELLITUS
  6. CLOPIDOGREL [Concomitant]
     Active Substance: CLOPIDOGREL BISULFATE
     Indication: DIABETES MELLITUS
  7. OLMESARTAN OD [Concomitant]
     Active Substance: OLMESARTAN MEDOXOMIL
     Indication: IGA NEPHROPATHY
     Dosage: 20 MILLIGRAM, QD
     Route: 048
  8. ROZEREM [Concomitant]
     Active Substance: RAMELTEON
     Indication: IGA NEPHROPATHY
     Dosage: 8 MILLIGRAM, QD
     Route: 048
  9. LANSOPRAZOLE. [Concomitant]
     Active Substance: LANSOPRAZOLE
     Indication: DIABETES MELLITUS
  10. TRAZENTA [Concomitant]
     Active Substance: LINAGLIPTIN
     Indication: IGA NEPHROPATHY
     Dosage: 5 MILLIGRAM, QD
     Route: 048
  11. OLMESARTAN OD [Concomitant]
     Active Substance: OLMESARTAN MEDOXOMIL
     Indication: DIABETES MELLITUS
  12. BELSOMRA [Concomitant]
     Active Substance: SUVOREXANT
     Indication: DIABETES MELLITUS
  13. ALFACALCIDOL [Concomitant]
     Active Substance: ALFACALCIDOL
     Indication: IGA NEPHROPATHY
     Dosage: 0.25 MICROGRAM, QD
     Route: 048
  14. ROSUVASTATIN. [Concomitant]
     Active Substance: ROSUVASTATIN
     Indication: DIABETES MELLITUS
  15. FEBURIC [Concomitant]
     Active Substance: FEBUXOSTAT
     Indication: IGA NEPHROPATHY
     Dosage: 10 MILLIGRAM, QD
     Route: 048
  16. RILUZOLE. [Concomitant]
     Active Substance: RILUZOLE
     Indication: AMYOTROPHIC LATERAL SCLEROSIS
     Dosage: 50 MILLIGRAM, QD
     Route: 048
     Dates: start: 20200924
  17. BELSOMRA [Concomitant]
     Active Substance: SUVOREXANT
     Indication: IGA NEPHROPATHY
     Dosage: 15 MILLIGRAM, QD
     Route: 048
  18. PREDNISOLONE. [Concomitant]
     Active Substance: PREDNISOLONE
     Indication: DIABETES MELLITUS
  19. ROZEREM [Concomitant]
     Active Substance: RAMELTEON
     Indication: DIABETES MELLITUS
  20. RADICUT BAG FOR I.V. INFUSION 30MG [Suspect]
     Active Substance: EDARAVONE
     Indication: AMYOTROPHIC LATERAL SCLEROSIS
     Dosage: 60 MILLIGRAM, QD
     Route: 041
     Dates: start: 20201211, end: 20201224
  21. ALFACALCIDOL [Concomitant]
     Active Substance: ALFACALCIDOL
     Indication: DIABETES MELLITUS
  22. LANSOPRAZOLE. [Concomitant]
     Active Substance: LANSOPRAZOLE
     Indication: IGA NEPHROPATHY
     Dosage: 15 MILLIGRAM, QD
     Route: 048

REACTIONS (1)
  - Hepatic function abnormal [Recovered/Resolved]

NARRATIVE: CASE EVENT DATE: 20201225
